FAERS Safety Report 8140218-8 (Version None)
Quarter: 2012Q1

REPORT INFORMATION
  Report Type: 
  Country: None (occurrence: None)
  Receive Date: 20120216
  Receipt Date: 20120207
  Transmission Date: 20120608
  Serious: No
  Sender: FDA-Public Use
  Company Number: US-BIOGENIDEC-2012BI005080

PATIENT
  Sex: Female

DRUGS (2)
  1. AVONEX [Concomitant]
     Indication: MULTIPLE SCLEROSIS
     Route: 030
     Dates: start: 20060901, end: 20060901
  2. TYSABRI [Suspect]
     Indication: MULTIPLE SCLEROSIS
     Route: 042
     Dates: start: 20060922

REACTIONS (6)
  - PAIN IN EXTREMITY [None]
  - DIARRHOEA [None]
  - HEADACHE [None]
  - PAIN [None]
  - PLANTAR FASCIITIS [None]
  - PRURITUS [None]
